FAERS Safety Report 9015207 (Version 1)
Quarter: 2013Q1

REPORT INFORMATION
  Report Type: Spontaneous
  Country: US (occurrence: None)
  Receive Date: 20130109
  Receipt Date: 20130109
  Transmission Date: 20140127
  Serious: Yes (Other)
  Sender: FDA-Public Use
  Company Number: None

PATIENT
  Sex: Male
  Weight: 102.06 kg

DRUGS (2)
  1. ANDRODERM -TESTOST. TRANSD. 4 MG/DAY WATSON PHARM. INC. [Suspect]
     Dosage: 1 PATCH DAILY TRANSDERMAL
     Route: 062
     Dates: start: 20030612, end: 20120815
  2. ANDROGEL TESTOSTERONE GEL 1.62% ABBVIE [Suspect]
     Dosage: 2 PUMPS DAILY TRANSDERMAL
     Route: 062

REACTIONS (1)
  - Blood testosterone decreased [None]
